FAERS Safety Report 5449012-X (Version None)
Quarter: 2007Q3

REPORT INFORMATION
  Report Type: 
  Country: None (occurrence: None)
  Receive Date: 20070911
  Receipt Date: 20070831
  Transmission Date: 20080115
  Serious: Yes (Disabling, Other)
  Sender: FDA-Public Use
  Company Number: US-ROCHE-508369

PATIENT
  Age: 86 Year
  Sex: Male
  Weight: 79.8 kg

DRUGS (13)
  1. BONIVA [Suspect]
     Indication: BONE SCAN ABNORMAL
     Route: 048
     Dates: start: 20060530, end: 20070727
  2. LUPRON [Concomitant]
     Indication: PROSTATE CANCER
     Dates: start: 20040101, end: 20060428
  3. UNSPECIFIED MEDICATION [Concomitant]
     Indication: PROSTATE CANCER
     Dosage: REPORTED AS 'RADIATION THERAPY'
  4. ECOTRIN [Concomitant]
     Route: 048
     Dates: start: 20060120
  5. MULTIVITAMIN WITH FE [Concomitant]
     Dosage: PATIENT TOOK DAILY.
     Route: 048
     Dates: start: 20060120
  6. ARICEPT [Concomitant]
     Indication: DEMENTIA
     Dosage: PATIENT TOOK 5 MG AT BEDTIME.
     Route: 048
     Dates: start: 20050808
  7. PRILOSEC [Concomitant]
     Route: 048
     Dates: start: 20060504
  8. DURAGESIC-100 [Concomitant]
     Indication: ANALGESIC THERAPY
     Dosage: PATIENT APPLIED ONE 50 MCG/HR PATCH EVERY 72 HOURS.
     Dates: start: 20051031
  9. DETROL LA [Concomitant]
     Dosage: REPORTED AS TAKEN DAILY.
     Route: 048
     Dates: start: 20060120
  10. HYDRODIURIL [Concomitant]
     Indication: HYPERTENSION
     Dosage: REPORTED AS 1/2 TABLET DAILY.
     Route: 048
     Dates: start: 20060120
  11. LISINOPRIL [Concomitant]
     Indication: HYPERTENSION
     Route: 048
     Dates: start: 20060120
  12. PROCTOFOAM HC [Concomitant]
     Dosage: REPORTED AS APPLIED AT BEDTIME.
     Route: 054
     Dates: start: 20070113
  13. KETOPROFEN [Concomitant]
     Dosage: REPORTED AS TAKEN TWICE DAILY.
     Dates: start: 20070113

REACTIONS (4)
  - TOOTH DISCOLOURATION [None]
  - TOOTH FRACTURE [None]
  - TOOTH INFECTION [None]
  - TOOTH LOSS [None]
